FAERS Safety Report 9563507 (Version 2)
Quarter: 2013Q4

REPORT INFORMATION
  Report Type: Spontaneous
  Country: GB (occurrence: None)
  Receive Date: 20130926
  Receipt Date: 20131211
  Transmission Date: 20140711
  Serious: Yes (Other)
  Sender: FDA-Public Use
  Company Number: AUR-APL-2013-07772

PATIENT
  Age: 62 Year
  Sex: Male
  Weight: 96.16 kg

DRUGS (6)
  1. SERTRALINE [Suspect]
     Indication: PRODUCT USED FOR UNKNOWN INDICATION
  2. ASPIRIN (ACETYLSALICYLIC ACID) [Concomitant]
  3. DILZEM XL (DILTIAZEM HYDROCHLORIDE) [Concomitant]
  4. DOXAZOSIN MESILATE (DOXAZOSIN MESILATE) [Concomitant]
  5. FLUCLOXACILLIN (FLUCLOXACILLIN) [Concomitant]
  6. SILDENAFIL (SILDENAFIL) [Concomitant]

REACTIONS (11)
  - Anxiety [None]
  - Hypertension [None]
  - Dizziness [None]
  - Hot flush [None]
  - Nausea [None]
  - Drug dispensing error [None]
  - Erectile dysfunction [None]
  - Ejaculation failure [None]
  - Wrong drug administered [None]
  - Chest pain [None]
  - Paraesthesia [None]
